FAERS Safety Report 5178999-8 (Version None)
Quarter: 2006Q4

REPORT INFORMATION
  Report Type: 
  Country: None (occurrence: None)
  Receive Date: 20061215
  Receipt Date: 20061215
  Transmission Date: 20070319
  Serious: Yes (Hospitalization)
  Sender: FDA-Public Use
  Company Number: None

PATIENT
  Sex: Male

DRUGS (10)
  1. REVLIMID [Suspect]
     Indication: MYELODYSPLASTIC SYNDROME
     Dates: start: 20061116, end: 20061214
  2. NYSTATIN [Concomitant]
  3. AMOXICILLIN [Concomitant]
  4. LORAZEPAM [Concomitant]
  5. PROCRIT [Concomitant]
  6. COLCHICINE [Concomitant]
  7. ALLOPURINOL SODIUM [Concomitant]
  8. ASPIRIN [Concomitant]
  9. OMEPRAZOLE [Concomitant]
  10. NTG SL [Concomitant]

REACTIONS (4)
  - EPISTAXIS [None]
  - HAEMATOCRIT DECREASED [None]
  - HAEMOGLOBIN DECREASED [None]
  - PLATELET COUNT DECREASED [None]
